FAERS Safety Report 6525780-0 (Version None)
Quarter: 2010Q1

REPORT INFORMATION
  Report Type: 
  Country: None (occurrence: None)
  Receive Date: 20100104
  Receipt Date: 20091222
  Transmission Date: 20100710
  Serious: Yes (Other)
  Sender: FDA-Public Use
  Company Number: US-JNJCH-2009033015

PATIENT
  Age: 70 Year
  Sex: Female
  Weight: 63.5 kg

DRUGS (5)
  1. LISTERINE WHITENING PLUS RESTORING FLUORIDE RINSE [Suspect]
     Indication: DENTAL CARE
     Dosage: TEXT:UNSPECIFIED ONCE A NIGHT
     Route: 048
  2. METOPROLOL TARTRATE [Concomitant]
     Indication: CARDIAC DISORDER
     Route: 048
  3. FLECAINIDE ACETATE [Concomitant]
     Indication: CARDIAC DISORDER
     Route: 048
  4. SYNTHROID [Concomitant]
     Indication: THYROID DISORDER
     Dosage: TEXT:88MCG UNSPECIFIED
     Route: 048
  5. LIPITOR [Concomitant]
     Indication: BLOOD CHOLESTEROL
     Route: 048

REACTIONS (3)
  - APPLICATION SITE BURN [None]
  - APPLICATION SITE ERYTHEMA [None]
  - APPLICATION SITE IRRITATION [None]
